FAERS Safety Report 6707978-1 (Version None)
Quarter: 2010Q2

REPORT INFORMATION
  Report Type: 
  Country: None (occurrence: None)
  Receive Date: 20100428
  Receipt Date: 20100417
  Transmission Date: 20101027
  Serious: Yes (Other)
  Sender: FDA-Public Use
  Company Number: 620442

PATIENT
  Age: 42 Year
  Sex: Female

DRUGS (1)
  1. QUIK-CARE MOISTURIZING GEL WATERLESS ANTIMICROBIAL HAND SANITIZER ETHY [Suspect]
     Indication: THERAPEUTIC SKIN CARE TOPICAL
     Dosage: PUMP INTO HANDS

REACTIONS (1)
  - ANAPHYLACTIC SHOCK [None]
